FAERS Safety Report 8199273-1 (Version None)
Quarter: 2012Q1

REPORT INFORMATION
  Report Type: 
  Country: None (occurrence: None)
  Receive Date: 20120309
  Receipt Date: 20120302
  Transmission Date: 20120608
  Serious: Yes (Hospitalization)
  Sender: FDA-Public Use
  Company Number: GB-PFIZER INC-2012057739

PATIENT
  Age: 59 Year
  Sex: Male

DRUGS (4)
  1. TRETINOIN [Concomitant]
  2. CLARITHROMYCIN [Concomitant]
  3. ENOXAPARIN [Concomitant]
  4. VFEND [Suspect]
     Indication: FUNGAL INFECTION
     Dosage: UNK
     Route: 048
     Dates: start: 20120208, end: 20120214

REACTIONS (2)
  - GLOMERULAR FILTRATION RATE DECREASED [None]
  - RENAL FAILURE ACUTE [None]
